FAERS Safety Report 16117273 (Version 5)
Quarter: 2022Q2

REPORT INFORMATION
  Report Type: Spontaneous
  Country: GB (occurrence: GB)
  Receive Date: 20190326
  Receipt Date: 20220408
  Transmission Date: 20220721
  Serious: Yes (Death, Life-Threatening, Hospitalization, Disabling, Other)
  Sender: FDA-Public Use
  Company Number: None

PATIENT
  Age: 47 Year
  Sex: Female

DRUGS (17)
  1. LOSARTAN [Suspect]
     Active Substance: LOSARTAN
     Indication: Hypertension
     Dosage: 100 MILLIGRAM DAILY; 100 MG, QD
     Route: 048
     Dates: end: 20180928
  2. LOSARTAN [Suspect]
     Active Substance: LOSARTAN
     Indication: Schizophrenia
     Dosage: 200 MG, QD
     Route: 048
     Dates: start: 20170317, end: 20180928
  3. HUMALOG MIX50/50 [Suspect]
     Active Substance: INSULIN LISPRO
     Indication: Diabetes mellitus
     Dosage: (60 IU, TID )
     Route: 048
     Dates: end: 20180928
  4. HUMALOG MIX50/50 [Suspect]
     Active Substance: INSULIN LISPRO
     Dosage: 120 IU, TID, 60 IU ALSO RECEIVED
     Route: 048
     Dates: end: 20180928
  5. HUMALOG MIX50/50 [Suspect]
     Active Substance: INSULIN LISPRO
     Dosage: 120 IU, TID,60 IU ALSO RECEIVED
     Route: 048
     Dates: end: 20180928
  6. HUMALOG MIX50/50 [Suspect]
     Active Substance: INSULIN LISPRO
     Dosage: 120 IU, TID,60 IU ALSO RECEIVED
     Route: 048
     Dates: end: 20180928
  7. FELODIPINE [Suspect]
     Active Substance: FELODIPINE
     Indication: Hypertension
     Dosage: 10 MILLIGRAM DAILY; 10 MG, QD
     Route: 048
     Dates: end: 20180928
  8. SERTRALINE [Suspect]
     Active Substance: SERTRALINE HYDROCHLORIDE
     Indication: Depression
     Dosage: 50 MG, QD.
     Route: 048
     Dates: start: 201709, end: 20180928
  9. LANSOPRAZOLE [Suspect]
     Active Substance: LANSOPRAZOLE
     Indication: Gastrooesophageal reflux disease
     Dosage: 30 MILLIGRAM DAILY; 30 MG, AM, QD
     Route: 065
     Dates: end: 20180928
  10. LANSOPRAZOLE [Suspect]
     Active Substance: LANSOPRAZOLE
     Indication: Blood cholesterol increased
     Dosage: 40 MILLIGRAM, QD
     Route: 048
  11. EZETIMIBE [Suspect]
     Active Substance: EZETIMIBE
     Indication: Blood cholesterol increased
     Dosage: 10 MILLIGRAM DAILY; 10 MG, QD
     Route: 048
     Dates: end: 20180928
  12. CLOZARIL [Suspect]
     Active Substance: CLOZAPINE
     Indication: Schizophrenia
     Dosage: 200 MILLIGRAM DAILY; 200 MG, PM, 1 DAY
     Route: 048
     Dates: start: 20170317, end: 20180928
  13. CLOZARIL [Suspect]
     Active Substance: CLOZAPINE
     Indication: Blood cholesterol increased
     Dosage: 10 MILLIGRAM, QD
     Dates: end: 20180928
  14. CLOZARIL [Suspect]
     Active Substance: CLOZAPINE
     Dosage: 100 MG, QD
     Route: 048
     Dates: end: 20180928
  15. PRAVASTATIN [Suspect]
     Active Substance: PRAVASTATIN
     Indication: Blood cholesterol increased
     Dosage: 40 MG, PM, QHS, UNIT DOSE: 40 MG
     Route: 048
  16. PRAVASTATIN [Suspect]
     Active Substance: PRAVASTATIN
     Indication: Depression
     Dosage: 50 MG, QD(SODIUM SALT OF PRAVASTATIN)
     Route: 048
     Dates: start: 201709
  17. AMLODIPINE [Suspect]
     Active Substance: AMLODIPINE BESYLATE
     Indication: Hypertension
     Dosage: 100 MG, QD
     Route: 048
     Dates: start: 20180928, end: 20180928

REACTIONS (8)
  - Multiple organ dysfunction syndrome [Fatal]
  - Pneumonia [Fatal]
  - Loss of consciousness [Fatal]
  - Off label use [Unknown]
  - Overdose [Unknown]
  - Medication error [Fatal]
  - Incorrect route of product administration [Fatal]
  - Intentional product misuse [Fatal]

NARRATIVE: CASE EVENT DATE: 20180101
